FAERS Safety Report 7740385-1 (Version None)
Quarter: 2011Q3

REPORT INFORMATION
  Report Type: 
  Country: None (occurrence: None)
  Receive Date: 20110909
  Receipt Date: 20110829
  Transmission Date: 20111222
  Serious: Yes (Hospitalization)
  Sender: FDA-Public Use
  Company Number: US-BAYER-2011-011052

PATIENT
  Age: 43 Year
  Sex: Female
  Weight: 57.143 kg

DRUGS (5)
  1. CALCIUM CARBONATE [Concomitant]
     Dosage: 500 MG, UNK
  2. VITAMIN D [Concomitant]
     Dosage: 1000 MG, QD
  3. TRAMADOL HYDROCHLORIDE [Concomitant]
     Dosage: UNK
     Route: 048
     Dates: start: 20080611, end: 20091222
  4. YAZ [Suspect]
     Indication: PREMENSTRUAL SYNDROME
     Dosage: UNK
     Dates: start: 20090213
  5. ASCORBIC ACID [Concomitant]

REACTIONS (4)
  - GALLBLADDER INJURY [None]
  - PAIN [None]
  - ABDOMINAL PAIN UPPER [None]
  - CHOLECYSTITIS CHRONIC [None]
